FAERS Safety Report 9727690 (Version 1)
Quarter: 2013Q4

REPORT INFORMATION
  Report Type: Spontaneous
  Country: IT (occurrence: IT)
  Receive Date: 20131203
  Receipt Date: 20131203
  Transmission Date: 20140711
  Serious: Yes (Hospitalization)
  Sender: FDA-Public Use
  Company Number: IT-MYLANLABS-2013S1026534

PATIENT
  Age: 23 Year
  Sex: Female

DRUGS (3)
  1. PAROXETINE [Suspect]
     Route: 048
     Dates: start: 20131021, end: 20131021
  2. DIAZEPAM [Suspect]
     Route: 048
     Dates: start: 20131021, end: 20131021
  3. TOLEP [Suspect]
     Route: 048
     Dates: start: 20131021, end: 20131021

REACTIONS (4)
  - Suicide attempt [Recovered/Resolved]
  - Drug abuse [Recovered/Resolved]
  - Sopor [Recovered/Resolved]
  - Overdose [Recovered/Resolved]
